FAERS Safety Report 7963906-2 (Version None)
Quarter: 2011Q4

REPORT INFORMATION
  Report Type: 
  Country: None (occurrence: None)
  Receive Date: 20111208
  Receipt Date: 20111108
  Transmission Date: 20120403
  Serious: No
  Sender: FDA-Public Use
  Company Number: US-BAYER-2011-108913

PATIENT
  Age: 75 Year
  Sex: Female

DRUGS (2)
  1. PAIN MEDICATION [Concomitant]
  2. ALEVE (CAPLET) [Suspect]
     Indication: ANALGESIC THERAPY
     Dosage: 1 DF, QD
     Route: 048
     Dates: start: 20111107

REACTIONS (1)
  - THERAPEUTIC RESPONSE DECREASED [None]
